FAERS Safety Report 9000911 (Version 1)
Quarter: 2013Q1

REPORT INFORMATION
  Report Type: Spontaneous
  Country: VE (occurrence: VE)
  Receive Date: 20130107
  Receipt Date: 20130107
  Transmission Date: 20140127
  Serious: Yes (Hospitalization, Other)
  Sender: FDA-Public Use
  Company Number: PHHY2012VE107410

PATIENT
  Age: 61 Year
  Sex: Female

DRUGS (4)
  1. ACLASTA [Suspect]
     Indication: OSTEOPOROSIS
     Dosage: 5 MG ANNUALLY
     Route: 042
     Dates: start: 20100317
  2. ACLASTA [Suspect]
     Dosage: 5 MG ANNUALLY
     Route: 042
     Dates: start: 20110318
  3. ACLASTA [Suspect]
     Dosage: 5 MG ANNUALLY
     Route: 042
     Dates: start: 20120614
  4. JANUMET [Concomitant]
     Indication: DIABETES MELLITUS
     Dosage: UNK
     Route: 048
     Dates: start: 2012

REACTIONS (2)
  - Bone decalcification [Recovering/Resolving]
  - Hypertension [Recovered/Resolved]
